FAERS Safety Report 21946979 (Version 1)
Quarter: 2023Q1

REPORT INFORMATION
  Report Type: Spontaneous
  Country: CH (occurrence: CH)
  Receive Date: 20230202
  Receipt Date: 20230202
  Transmission Date: 20230417
  Serious: Yes (Hospitalization)
  Sender: FDA-Public Use
  Company Number: None

PATIENT
  Age: 48 Year
  Sex: Female
  Weight: 70 kg

DRUGS (3)
  1. PAXLOVID [Interacting]
     Active Substance: NIRMATRELVIR\RITONAVIR
     Indication: COVID-19 treatment
     Dosage: EVERY 12 HOURS
     Route: 048
     Dates: start: 20221221, end: 20221224
  2. TACROLIMUS [Interacting]
     Active Substance: TACROLIMUS
     Indication: Prophylaxis against transplant rejection
     Dosage: 4 MG, DAILY
     Route: 048
     Dates: start: 2013, end: 20221225
  3. AZATHIOPRINE [Concomitant]
     Active Substance: AZATHIOPRINE
     Indication: Prophylaxis against transplant rejection

REACTIONS (6)
  - Drug interaction [Not Recovered/Not Resolved]
  - Labelled drug-drug interaction medication error [Recovering/Resolving]
  - Drug level increased [Recovering/Resolving]
  - Headache [Recovered/Resolved]
  - Blood pressure increased [Recovering/Resolving]
  - Hypomagnesaemia [Not Recovered/Not Resolved]

NARRATIVE: CASE EVENT DATE: 20221221
